FAERS Safety Report 4525848-4 (Version None)
Quarter: 2004Q4

REPORT INFORMATION
  Report Type: 
  Country: None (occurrence: None)
  Receive Date: 20041213
  Receipt Date: 20011024
  Transmission Date: 20050328
  Serious: Yes (Death, Hospitalization)
  Sender: FDA-Public Use
  Company Number: US-MERCK-01104488

PATIENT
  Age: 84 Year
  Sex: Male
  Weight: 86 kg

DRUGS (10)
  1. VIOXX [Suspect]
     Indication: OSTEOARTHRITIS
     Route: 048
     Dates: start: 20000701, end: 20000101
  2. LASIX [Concomitant]
     Indication: OEDEMA PERIPHERAL
     Route: 065
  3. HERBS (UNSPECIFIED) [Concomitant]
     Route: 065
     Dates: start: 19970401, end: 20000901
  4. ASPIRIN [Concomitant]
     Route: 065
  5. CAPOTEN [Concomitant]
     Indication: HYPERTENSION
     Route: 065
  6. DIAMOX [Concomitant]
     Route: 065
  7. VITAMINS (UNSPECIFIED) [Concomitant]
     Route: 065
  8. ACETAMINOPHEN [Concomitant]
     Route: 065
     Dates: start: 20000901, end: 20000901
  9. [THERAPY UNSPECIFIED] [Concomitant]
     Route: 065
  10. ACETAMINOPHEN AND CODEINE [Concomitant]
     Route: 065

REACTIONS (24)
  - BLOOD CREATINE PHOSPHOKINASE INCREASED [None]
  - BLOOD PRESSURE DECREASED [None]
  - CARDIAC FAILURE CONGESTIVE [None]
  - CHRONIC OBSTRUCTIVE AIRWAYS DISEASE [None]
  - CONFUSIONAL STATE [None]
  - COUGH [None]
  - DEHYDRATION [None]
  - DIARRHOEA [None]
  - ENCEPHALOPATHY [None]
  - HYPOGLYCAEMIA [None]
  - INFLUENZA [None]
  - INJURY [None]
  - LYMPHADENOPATHY [None]
  - METABOLIC ACIDOSIS [None]
  - NAUSEA [None]
  - OEDEMA PERIPHERAL [None]
  - RENAL FAILURE ACUTE [None]
  - SEPSIS [None]
  - TOXIC INDUCED ENCEPHALOPATHY [None]
  - TROPONIN INCREASED [None]
  - URINE OUTPUT DECREASED [None]
  - VISUAL ACUITY REDUCED [None]
  - VOMITING [None]
  - WEIGHT DECREASED [None]
